FAERS Safety Report 7654966-7 (Version None)
Quarter: 2011Q3

REPORT INFORMATION
  Report Type: 
  Country: None (occurrence: None)
  Receive Date: 20110804
  Receipt Date: 20110722
  Transmission Date: 20111222
  Serious: No
  Sender: FDA-Public Use
  Company Number: PHHY2011JP55868

PATIENT
  Sex: Male

DRUGS (5)
  1. PEGINTERFERON ALFA-2A [Suspect]
     Indication: HEPATITIS C
     Dosage: UNK UKN, UNK
     Route: 065
     Dates: start: 20100301, end: 20110201
  2. RIBAVIRIN [Suspect]
     Indication: HEPATITIS C
     Dosage: UNK UKN, UNK
     Route: 065
     Dates: start: 20100301, end: 20110201
  3. IMATINIB MESYLATE [Suspect]
     Indication: CHRONIC MYELOID LEUKAEMIA
     Dosage: 400 MG, DAILY
     Route: 048
     Dates: start: 20030601
  4. IMATINIB MESYLATE [Suspect]
     Dosage: 200 MG, DAILY
     Route: 048
  5. IMATINIB MESYLATE [Suspect]
     Dosage: 400 MG, DAILY
     Route: 048

REACTIONS (3)
  - ALANINE AMINOTRANSFERASE INCREASED [None]
  - NEUTROPHIL COUNT DECREASED [None]
  - HEPATITIS C VIRUS TEST POSITIVE [None]
